FAERS Safety Report 5921287-X (Version None)
Quarter: 2008Q4

REPORT INFORMATION
  Report Type: 
  Country: None (occurrence: None)
  Receive Date: 20081014
  Receipt Date: 20080925
  Transmission Date: 20090506
  Serious: Yes (Death)
  Sender: FDA-Public Use
  Company Number: 8037682

PATIENT
  Age: 48 Year
  Sex: Male

DRUGS (10)
  1. PREDNISOLONE [Suspect]
     Indication: ENDOCARDITIS
     Dosage: 30 MG/D PO
     Route: 048
  2. PREDNISOLONE [Suspect]
     Indication: GLOMERULONEPHRITIS RAPIDLY PROGRESSIVE
     Dosage: 30 MG/D PO
     Route: 048
  3. PREDNISOLONE [Suspect]
     Indication: ENDOCARDITIS
     Dosage: 20 MG/D PO
     Route: 048
  4. PREDNISOLONE [Suspect]
     Indication: GLOMERULONEPHRITIS RAPIDLY PROGRESSIVE
     Dosage: 20 MG/D PO
     Route: 048
  5. PREDNISOLONE [Suspect]
     Indication: ENDOCARDITIS
     Dosage: 10 MG/D PO
     Route: 048
  6. PREDNISOLONE [Suspect]
     Indication: GLOMERULONEPHRITIS RAPIDLY PROGRESSIVE
     Dosage: 10 MG/D PO
     Route: 048
  7. METHYLPREDNISOLONE 16MG TAB [Suspect]
     Indication: ENDOCARDITIS
     Dosage: 0.5 G/D IV
     Route: 042
  8. METHYLPREDNISOLONE 16MG TAB [Suspect]
     Indication: GLOMERULONEPHRITIS RAPIDLY PROGRESSIVE
     Dosage: 0.5 G/D IV
     Route: 042
  9. SULTAMICILLIN [Concomitant]
  10. MEROPENEM [Concomitant]

REACTIONS (8)
  - ANEURYSM RUPTURED [None]
  - ASCITES [None]
  - CARDIAC ARREST [None]
  - CONDITION AGGRAVATED [None]
  - DISEASE COMPLICATION [None]
  - SHOCK [None]
  - SPLENIC ARTERY ANEURYSM [None]
  - SPLENIC INFECTION [None]
